FAERS Safety Report 11792473 (Version 1)
Quarter: 2015Q4

REPORT INFORMATION
  Report Type: Spontaneous
  Country: US (occurrence: US)
  Receive Date: 20151202
  Receipt Date: 20151202
  Transmission Date: 20160305
  Serious: Yes (Other)
  Sender: FDA-Public Use
  Company Number: US-AUROBINDO-AUR-APL-2015-10829

PATIENT

DRUGS (3)
  1. TRAMADOL 50MG [Suspect]
     Active Substance: TRAMADOL
     Indication: PAIN
     Dosage: 50 MG, 3 TIMES A DAY
     Route: 065
  2. GABAPENTIN. [Concomitant]
     Active Substance: GABAPENTIN
     Indication: PRODUCT USED FOR UNKNOWN INDICATION
     Dosage: 300 MG, DAILY
     Route: 065
  3. IBUPROFEN. [Concomitant]
     Active Substance: IBUPROFEN
     Indication: PRODUCT USED FOR UNKNOWN INDICATION
     Dosage: 800 MG, 800 MG TID FOR A WEEK
     Route: 065

REACTIONS (5)
  - Ejaculation failure [Recovered/Resolved]
  - Polyuria [Recovered/Resolved]
  - Orgasm abnormal [Recovered/Resolved]
  - Erectile dysfunction [Recovered/Resolved]
  - Pollakiuria [Recovered/Resolved]
